FAERS Safety Report 18778406 (Version 5)
Quarter: 2021Q3

REPORT INFORMATION
  Report Type: Other
  Country: CA (occurrence: CA)
  Receive Date: 20210123
  Receipt Date: 20210906
  Transmission Date: 20211014
  Serious: Yes (Other)
  Sender: FDA-Public Use
  Company Number: CA-ROCHE-2323000

PATIENT
  Age: 66 Year
  Sex: Female

DRUGS (5)
  1. VASOTEC [Concomitant]
     Active Substance: ENALAPRIL MALEATE
     Indication: BLOOD PRESSURE MEASUREMENT
  2. NORTRIPTYLINE [Concomitant]
     Active Substance: NORTRIPTYLINE
     Indication: NECK PAIN
  3. LIPITOR [Concomitant]
     Active Substance: ATORVASTATIN CALCIUM
     Indication: BLOOD CHOLESTEROL
  4. OCREVUS [Suspect]
     Active Substance: OCRELIZUMAB
     Indication: PRIMARY PROGRESSIVE MULTIPLE SCLEROSIS
     Dosage: 300 MG AT DAY 0 AND 14, THEN 600 MG EVERY 6 MONTH
     Route: 042
     Dates: start: 20190509
  5. OCREVUS [Suspect]
     Active Substance: OCRELIZUMAB
     Dosage: DAY 0 AND 14, THEN 600 MG EVERY 6 MONTH
     Route: 042

REACTIONS (13)
  - Pruritus [Unknown]
  - Epistaxis [Unknown]
  - Influenza [Not Recovered/Not Resolved]
  - Stress [Recovered/Resolved]
  - Nasopharyngitis [Not Recovered/Not Resolved]
  - Gastroenteritis viral [Recovered/Resolved]
  - Rash [Recovered/Resolved]
  - Arthralgia [Recovered/Resolved]
  - Headache [Not Recovered/Not Resolved]
  - Infusion related reaction [Recovering/Resolving]
  - Cough [Not Recovered/Not Resolved]
  - Urticaria [Recovering/Resolving]
  - Sleep apnoea syndrome [Not Recovered/Not Resolved]

NARRATIVE: CASE EVENT DATE: 20190509
